FAERS Safety Report 16785661 (Version 1)
Quarter: 2019Q3

REPORT INFORMATION
  Report Type: Spontaneous
  Country: US (occurrence: US)
  Receive Date: 20190909
  Receipt Date: 20190909
  Transmission Date: 20191005
  Serious: No
  Sender: FDA-Public Use
  Company Number: US-009507513-1908USA012511

PATIENT
  Age: 18 Year

DRUGS (1)
  1. ETONOGESTREL IMPLANT- UNKNOWN [Suspect]
     Active Substance: ETONOGESTREL
     Dosage: 1 DOSAGE FORM
     Route: 058
     Dates: start: 201510, end: 20190801

REACTIONS (2)
  - Incorrect product administration duration [Unknown]
  - Complication of device removal [Recovered/Resolved]
